FAERS Safety Report 17481553 (Version 2)
Quarter: 2020Q1

REPORT INFORMATION
  Report Type: Spontaneous
  Country: BR (occurrence: BR)
  Receive Date: 20200302
  Receipt Date: 20200305
  Transmission Date: 20200409
  Serious: Yes (Hospitalization, Other)
  Sender: FDA-Public Use
  Company Number: BR-SA-2020SA047593

PATIENT
  Age: 38 Year
  Sex: Female
  Weight: 73 kg

DRUGS (2)
  1. UTROGESTAN [Concomitant]
     Active Substance: PROGESTERONE
     Indication: PROGESTERONE
     Dosage: UNK
     Dates: start: 201911
  2. CLEXANE [Suspect]
     Active Substance: ENOXAPARIN SODIUM
     Indication: HYPERCOAGULATION
     Dosage: 1 DF, QD
     Route: 058
     Dates: start: 20191203

REACTIONS (5)
  - Hospitalisation [Recovered/Resolved]
  - Nausea [Recovered/Resolved]
  - Haemorrhage [Recovered/Resolved]
  - Exposure during pregnancy [Unknown]
  - Product use in unapproved indication [Unknown]

NARRATIVE: CASE EVENT DATE: 201912
